FAERS Safety Report 6743102-7 (Version None)
Quarter: 2010Q2

REPORT INFORMATION
  Report Type: 
  Country: None (occurrence: None)
  Receive Date: 20100527
  Receipt Date: 20100517
  Transmission Date: 20101027
  Serious: Yes (Other)
  Sender: FDA-Public Use
  Company Number: IT-BAYER-201024821GPV

PATIENT
  Age: 78 Year
  Sex: Female

DRUGS (1)
  1. ALEMTUZUMAB [Suspect]
     Indication: CHRONIC LYMPHOCYTIC LEUKAEMIA
     Dosage: TOTAL DAILY DOSE: 10 MG
     Route: 042
     Dates: start: 20030901, end: 20031101

REACTIONS (1)
  - GASTRIC CANCER [None]
